FAERS Safety Report 10189344 (Version 1)
Quarter: 2014Q2

REPORT INFORMATION
  Report Type: Spontaneous
  Country: US (occurrence: US)
  Receive Date: 20140522
  Receipt Date: 20140522
  Transmission Date: 20141212
  Serious: Yes (Death, Other)
  Sender: FDA-Public Use
  Company Number: US-MERCK-1405USA009986

PATIENT
  Sex: 0

DRUGS (2)
  1. JANUVIA [Suspect]
     Dosage: UNK
     Route: 048
     Dates: start: 2010, end: 201104
  2. JANUMET [Suspect]
     Dosage: UNK
     Route: 048
     Dates: start: 201104, end: 201206

REACTIONS (2)
  - Pancreatic carcinoma [Unknown]
  - Death [Fatal]
